FAERS Safety Report 19010189 (Version 1)
Quarter: 2021Q1

REPORT INFORMATION
  Report Type: Report from Study
  Country: US (occurrence: US)
  Receive Date: 20210316
  Receipt Date: 20210316
  Transmission Date: 20210420
  Serious: Yes (Other)
  Sender: FDA-Public Use
  Company Number: US-AMGEN-USASL2020023704

PATIENT
  Age: 64 Year
  Sex: Female

DRUGS (4)
  1. ENBREL [Suspect]
     Active Substance: ETANERCEPT
     Indication: RHEUMATOID ARTHRITIS
     Dosage: 50 MILLIGRAM, QWK
     Route: 065
  2. COVID?19 VACCINE [Concomitant]
     Dosage: UNK
     Dates: start: 202103
  3. ENBREL [Suspect]
     Active Substance: ETANERCEPT
     Dosage: 50 MILLIGRAM, QWK
     Route: 065
  4. ENBREL [Suspect]
     Active Substance: ETANERCEPT
     Dosage: 50 MILLIGRAM, QWK
     Route: 065
     Dates: start: 202001

REACTIONS (9)
  - Nasopharyngitis [Unknown]
  - Device issue [Unknown]
  - Injection site pain [Unknown]
  - Injection site macule [Recovered/Resolved]
  - Pain [Unknown]
  - Rheumatoid arthritis [Not Recovered/Not Resolved]
  - Influenza [Unknown]
  - COVID-19 [Recovered/Resolved]
  - Injection site erythema [Recovered/Resolved]

NARRATIVE: CASE EVENT DATE: 2020
